FAERS Safety Report 9485962 (Version 1)
Quarter: 2013Q3

REPORT INFORMATION
  Report Type: Spontaneous
  Country: FR (occurrence: None)
  Receive Date: 20130820
  Receipt Date: 20130820
  Transmission Date: 20140515
  Serious: Yes (Other)
  Sender: FDA-Public Use
  Company Number: FR-20130303

PATIENT
  Sex: Female

DRUGS (3)
  1. DOTAREM [Suspect]
     Indication: NUCLEAR MAGNETIC RESONANCE IMAGING
     Dosage: (1 IN 1 D)
     Dates: start: 20130604, end: 20130604
  2. ROCALTROL (CALCITRIOL) [Concomitant]
  3. CLAMOXYL (AMOXICILLIN) [Concomitant]

REACTIONS (3)
  - Guttate psoriasis [None]
  - Renal failure chronic [None]
  - Condition aggravated [None]
